FAERS Safety Report 4862407-8 (Version None)
Quarter: 2005Q4

REPORT INFORMATION
  Report Type: 
  Country: None (occurrence: None)
  Receive Date: 20051129
  Receipt Date: 20050902
  Transmission Date: 20060501
  Serious: No
  Sender: FDA-Public Use
  Company Number: WAES 0509USA00409

PATIENT
  Age: 76 Year
  Sex: Male

DRUGS (6)
  1. ZETIA [Suspect]
     Indication: BLOOD CHOLESTEROL INCREASED
     Dosage: 10 MG DAILY PO
     Route: 048
     Dates: start: 20050101
  2. DITROPAN XL [Concomitant]
  3. PLAVIX [Concomitant]
  4. PRINIVIL [Concomitant]
  5. VIOXX [Concomitant]
  6. ASPIRIN [Concomitant]

REACTIONS (4)
  - ADVERSE EVENT [None]
  - DYSGEUSIA [None]
  - OESOPHAGEAL DISORDER [None]
  - PRODUCTIVE COUGH [None]
